FAERS Safety Report 5233356-0 (Version None)
Quarter: 2007Q1

REPORT INFORMATION
  Report Type: 
  Country: None (occurrence: None)
  Receive Date: 20070206
  Receipt Date: 20070206
  Transmission Date: 20070707
  Serious: No
  Sender: FDA-Public Use
  Company Number: None

PATIENT
  Age: 50 Year
  Sex: Female
  Weight: 54.4316 kg

DRUGS (1)
  1. LEVAQUIN [Suspect]
     Indication: URINARY TRACT INFECTION
     Dosage: ONE  500MG TAB  DAILY  INJ
     Dates: start: 20050102, end: 20050105

REACTIONS (3)
  - COELIAC DISEASE [None]
  - DERMATITIS [None]
  - LACTOSE INTOLERANCE [None]
